FAERS Safety Report 9203203 (Version 1)
Quarter: 2013Q1

REPORT INFORMATION
  Report Type: Spontaneous
  Country: CA (occurrence: None)
  Receive Date: 20130328
  Receipt Date: 20130328
  Transmission Date: 20140127
  Serious: Yes (Life-Threatening, Hospitalization)
  Sender: FDA-Public Use
  Company Number: CA-011241

PATIENT
  Age: 58 Year
  Sex: Male
  Weight: 95 kg

DRUGS (4)
  1. FIRMAGON [Suspect]
     Indication: PROSTATE CANCER
     Route: 058
     Dates: start: 201009
  2. ENDOCRINE THERAPY [Concomitant]
  3. AVAPRO [Concomitant]
  4. LOVENOX [Concomitant]

REACTIONS (2)
  - Pulmonary embolism [None]
  - Phlebitis [None]
